FAERS Safety Report 14468227 (Version 1)
Quarter: 2018Q1

REPORT INFORMATION
  Report Type: Other
  Country: None (occurrence: US)
  Receive Date: 20180131
  Receipt Date: 20180131
  Transmission Date: 20180509
  Serious: Yes (Other)
  Sender: FDA-Public Use
  Company Number: US-ALSI-201800060

PATIENT
  Age: 57 Year
  Sex: Male

DRUGS (4)
  1. PROPOFOL. [Suspect]
     Active Substance: PROPOFOL
     Route: 065
  2. OXYGEN 100% [Suspect]
     Active Substance: OXYGEN
     Indication: VENTRICULAR TACHYCARDIA
     Route: 050
  3. PETHIDINE [Concomitant]
     Active Substance: MEPERIDINE
  4. FENTANYL. [Concomitant]
     Active Substance: FENTANYL

REACTIONS (2)
  - Chills [Recovered/Resolved]
  - Rhabdomyolysis [Recovered/Resolved]
